FAERS Safety Report 8509941-7 (Version None)
Quarter: 2012Q3

REPORT INFORMATION
  Report Type: 
  Country: None (occurrence: None)
  Receive Date: 20120713
  Receipt Date: 20120706
  Transmission Date: 20120928
  Serious: Yes (Hospitalization)
  Sender: FDA-Public Use
  Company Number: US-ASTRAZENECA-2012SE28690

PATIENT
  Age: 62 Year
  Sex: Female
  Weight: 70.3 kg

DRUGS (76)
  1. SEROQUEL XR [Suspect]
     Route: 048
  2. SEROQUEL XR [Suspect]
     Route: 048
  3. LOVASTATIN [Concomitant]
     Route: 048
     Dates: start: 20050527
  4. DIPHTHERIA TETANUS VACCINE [Concomitant]
     Route: 030
     Dates: start: 20060515
  5. CRANBERRY [Concomitant]
     Dosage: 2000 MG + 2 THREE TIMES A DAY
  6. CYSTEX PLUS [Concomitant]
     Dosage: 162.5 MH
  7. CITALOPRAM HYDROBROMIDE [Concomitant]
     Dosage: 1/2 DAILY FOR 4 DAYS AND THEN ONCE DAILY
     Route: 048
     Dates: start: 20061101
  8. CHOLECALCIFEROL/VITAMIN D3 [Concomitant]
     Dosage: 2000 UNIT 1 TAB EVERY DAY
     Route: 048
  9. ZOLPIDEM TARTRATE [Concomitant]
     Route: 048
  10. SEROQUEL XR [Suspect]
     Route: 048
  11. SEROQUEL XR [Suspect]
     Route: 048
  12. ZYPREXA [Concomitant]
     Route: 048
     Dates: start: 20050128
  13. PAROXETINE [Concomitant]
     Route: 048
     Dates: start: 20060106
  14. FLU VACCINE [Concomitant]
     Dosage: SPLIT
     Dates: start: 20061014
  15. CALCIUM [Concomitant]
  16. SEROQUEL XR [Suspect]
     Indication: PSYCHOTIC DISORDER
     Route: 048
     Dates: start: 20070201
  17. SEROQUEL XR [Suspect]
     Route: 048
  18. SEROQUEL XR [Suspect]
     Route: 048
  19. SEROQUEL XR [Suspect]
     Route: 048
     Dates: start: 20071201
  20. SEROQUEL XR [Suspect]
     Route: 048
     Dates: start: 20071201
  21. ZYPREXA [Concomitant]
     Route: 048
     Dates: start: 20041117
  22. LUNESTA [Concomitant]
     Indication: INSOMNIA
     Route: 048
     Dates: start: 20051122
  23. KLONOPIN [Concomitant]
     Route: 048
     Dates: start: 19980504
  24. FLU VACCINE [Concomitant]
     Dosage: WHOLE
     Dates: start: 20090904
  25. HEPATITIS A AND HEPATITIS B [Concomitant]
     Route: 030
     Dates: start: 20110825
  26. CALCIUM CARBONATE [Concomitant]
     Route: 048
  27. SEROQUEL XR [Suspect]
     Indication: INSOMNIA
     Route: 048
     Dates: start: 20070201
  28. SEROQUEL XR [Suspect]
     Route: 048
     Dates: start: 20071201
  29. SEROQUEL XR [Suspect]
     Route: 048
  30. DIVALPROEX SODIUM [Suspect]
     Route: 048
  31. TDAP [Concomitant]
     Dates: start: 20111104
  32. OXYBUTYNIN [Concomitant]
  33. ASPIRIN [Concomitant]
     Route: 048
  34. COQ [Concomitant]
  35. SEROQUEL XR [Suspect]
     Route: 048
     Dates: start: 20071201
  36. SEROQUEL XR [Suspect]
     Route: 048
  37. SEROQUEL XR [Suspect]
     Route: 048
     Dates: start: 20071201
  38. MULTI-VITAMINS [Suspect]
     Route: 048
  39. ZIPRASIDONE HCL [Concomitant]
     Dosage: TAKE 1 BID AND 1 DAILY
     Route: 048
     Dates: start: 20050506
  40. CLONAZEPAM [Concomitant]
     Indication: ANXIETY
     Dosage: 1/2 BID PRN
     Route: 048
     Dates: start: 20050909
  41. TRAZODONE HYDROCHLORIDE [Concomitant]
     Dosage: 1/2-1 AT NIGHT
     Route: 048
     Dates: start: 20060111
  42. FLU VACCINE [Concomitant]
     Dosage: SPLIT
     Dates: start: 20110913
  43. SODIUM SALICYLATE ECT [Concomitant]
  44. DIGOXIN [Concomitant]
  45. OTC LIPID CONTROL REMEDY [Concomitant]
  46. PRILOSEC OTC [Concomitant]
     Indication: THROAT TIGHTNESS
  47. OMEPRAZOLE [Concomitant]
  48. SEROQUEL XR [Suspect]
     Indication: DELUSIONAL DISORDER, UNSPECIFIED TYPE
     Route: 048
     Dates: start: 20070201
  49. SEROQUEL XR [Suspect]
     Indication: SCHIZOPHRENIA
     Route: 048
     Dates: start: 20070201
  50. SEROQUEL XR [Suspect]
     Route: 048
     Dates: start: 20071201
  51. SEROQUEL XR [Suspect]
     Route: 048
  52. SEROQUEL XR [Suspect]
     Route: 048
     Dates: start: 20071201
  53. SEROQUEL XR [Suspect]
     Route: 048
  54. SEROQUEL XR [Suspect]
     Route: 048
  55. VITAMIN D [Concomitant]
     Dosage: 1000 UNIT
  56. CLONAZEPAM [Concomitant]
     Indication: AGITATION
     Dosage: 1/2 BID PRN
     Route: 048
     Dates: start: 20050909
  57. KENALOG [Concomitant]
  58. SEROQUEL XR [Suspect]
     Route: 048
     Dates: start: 20071201
  59. SEROQUEL XR [Suspect]
     Route: 048
     Dates: start: 20071201
  60. SEROQUEL XR [Suspect]
     Route: 048
  61. DEPAKOTE [Concomitant]
     Dosage: 2 EVERY MORNING AND 2 AT NIGHT
     Route: 048
     Dates: start: 20120330
  62. AMBIEN [Concomitant]
     Indication: INSOMNIA
     Route: 048
     Dates: start: 20120330
  63. ATIVAN [Concomitant]
     Route: 048
     Dates: start: 20101118, end: 20110722
  64. FLU VACCINE [Concomitant]
     Dosage: SPLIT
     Dates: start: 20080922
  65. HEPATITIS A AND HEPATITIS B [Concomitant]
     Route: 030
     Dates: start: 20110727
  66. METHENAMINE TAB [Concomitant]
  67. ZOSTER VACCINE [Concomitant]
     Route: 058
     Dates: start: 20111104
  68. METFORMIN HCL [Concomitant]
  69. SEROQUEL XR [Suspect]
     Indication: DEPRESSION
     Route: 048
     Dates: start: 20070201
  70. SEROQUEL XR [Suspect]
     Route: 048
     Dates: start: 20071201
  71. SEROQUEL XR [Suspect]
     Route: 048
  72. SEROQUEL XR [Suspect]
     Route: 048
  73. SEROQUEL XR [Suspect]
     Route: 048
  74. RISPERDAL [Concomitant]
     Dates: start: 20111221
  75. ZOLOFT [Concomitant]
     Route: 048
     Dates: start: 20101118, end: 20101118
  76. FLU VACCINE [Concomitant]
     Dosage: WHOLE
     Dates: start: 20061014

REACTIONS (48)
  - ANGER [None]
  - DYSARTHRIA [None]
  - GALACTORRHOEA [None]
  - CONSTIPATION [None]
  - HERPES VIRUS INFECTION [None]
  - INSOMNIA [None]
  - DYSURIA [None]
  - DRY MOUTH [None]
  - PSYCHOMOTOR HYPERACTIVITY [None]
  - DELUSIONAL DISORDER, UNSPECIFIED TYPE [None]
  - FREQUENT BOWEL MOVEMENTS [None]
  - VULVOVAGINAL DRYNESS [None]
  - ECZEMA [None]
  - PRURITUS [None]
  - VITAMIN D DECREASED [None]
  - CARPAL TUNNEL SYNDROME [None]
  - PAIN IN EXTREMITY [None]
  - METABOLIC SYNDROME [None]
  - IRRITABILITY [None]
  - POSTMENOPAUSAL HAEMORRHAGE [None]
  - COORDINATION ABNORMAL [None]
  - TREMOR [None]
  - RASH [None]
  - URINARY INCONTINENCE [None]
  - FATIGUE [None]
  - GAIT DISTURBANCE [None]
  - FEELING HOT [None]
  - WEIGHT DECREASED [None]
  - OFF LABEL USE [None]
  - ANXIETY DISORDER [None]
  - INTRADUCTAL PAPILLOMA OF BREAST [None]
  - CLUMSINESS [None]
  - GASTROOESOPHAGEAL REFLUX DISEASE [None]
  - MEMORY IMPAIRMENT [None]
  - DERMATITIS [None]
  - EAR PAIN [None]
  - JOINT SWELLING [None]
  - HYPERLIPIDAEMIA [None]
  - DYSPHAGIA [None]
  - PARANOIA [None]
  - ARTHRALGIA [None]
  - DIABETES MELLITUS [None]
  - SKIN PAPILLOMA [None]
  - POLLAKIURIA [None]
  - VULVA CYST [None]
  - URINARY TRACT INFECTION [None]
  - ATROPHIC VULVOVAGINITIS [None]
  - WEIGHT INCREASED [None]
